FAERS Safety Report 18406284 (Version 5)
Quarter: 2020Q4

REPORT INFORMATION
  Report Type: Report from Study
  Country: US (occurrence: US)
  Receive Date: 20201020
  Receipt Date: 20201212
  Transmission Date: 20210114
  Serious: Yes (Hospitalization)
  Sender: FDA-Public Use
  Company Number: NVSC2020US279763

PATIENT
  Sex: Male

DRUGS (3)
  1. ENTRESTO [Suspect]
     Active Substance: SACUBITRIL\VALSARTAN
     Indication: PRODUCT USED FOR UNKNOWN INDICATION
     Dosage: 1 DF, BID
     Route: 048
     Dates: start: 202004
  2. ENTRESTO [Suspect]
     Active Substance: SACUBITRIL\VALSARTAN
     Dosage: 0.5 DF, BID (49/51MG)
     Route: 065
  3. ENTRESTO [Suspect]
     Active Substance: SACUBITRIL\VALSARTAN
     Dosage: UNK (FULL DOSE)
     Route: 065

REACTIONS (15)
  - Synovial rupture [Unknown]
  - Blood potassium decreased [Unknown]
  - Hypotension [Unknown]
  - Feeling abnormal [Unknown]
  - Product dose omission issue [Unknown]
  - Chest discomfort [Unknown]
  - COVID-19 [Unknown]
  - Dyspnoea [Unknown]
  - Muscle spasms [Unknown]
  - Vitamin B12 abnormal [Unknown]
  - Arthropathy [Unknown]
  - Fatigue [Unknown]
  - Wrong technique in product usage process [Unknown]
  - Dehydration [Unknown]
  - Gout [Unknown]
